FAERS Safety Report 5612664-5 (Version None)
Quarter: 2008Q1

REPORT INFORMATION
  Report Type: 
  Country: None (occurrence: None)
  Receive Date: 20080130
  Receipt Date: 20080116
  Transmission Date: 20080703
  Serious: Yes (Other)
  Sender: FDA-Public Use
  Company Number: CHPA2008US01493

PATIENT
  Age: 82 Year
  Sex: Male

DRUGS (3)
  1. ACETYLSALICYLIC ACID SRT [Suspect]
  2. DIGOXIN [Concomitant]
  3. PROPRANOLOL [Concomitant]

REACTIONS (1)
  - GRANULOMA [None]
